FAERS Safety Report 6574524-5 (Version None)
Quarter: 2010Q1

REPORT INFORMATION
  Report Type: 
  Country: None (occurrence: None)
  Receive Date: 20100209
  Receipt Date: 20091104
  Transmission Date: 20100710
  Serious: No
  Sender: FDA-Public Use
  Company Number: A0816371A

PATIENT
  Age: 33 Year
  Sex: Female
  Weight: 150 kg

DRUGS (3)
  1. PAXIL [Suspect]
     Indication: ANXIETY
     Dosage: 20MG PER DAY
     Route: 048
     Dates: start: 20091001
  2. CHANTIX [Suspect]
     Dosage: .5MG PER DAY
     Route: 048
     Dates: start: 20090925
  3. SERTRALINE HCL [Concomitant]
     Indication: ANXIETY
     Dates: end: 20091001

REACTIONS (2)
  - ASTHENIA [None]
  - FATIGUE [None]
